FAERS Safety Report 8811176 (Version 1)
Quarter: 2012Q4

REPORT INFORMATION
  Report Type: Spontaneous
  Country: US (occurrence: None)
  Receive Date: 20120925
  Receipt Date: 20120925
  Transmission Date: 20130627
  Serious: No
  Sender: FDA-Public Use
  Company Number: None

PATIENT
  Age: 62 Year
  Sex: Female
  Weight: 53.52 kg

DRUGS (2)
  1. TETRACAINE [Suspect]
     Indication: NASOENDOSCOPY
     Dates: start: 20120904
  2. AFRIN [Suspect]
     Indication: NASOENDOSCOPY

REACTIONS (5)
  - Throat tightness [None]
  - Palpitations [None]
  - Hypoaesthesia [None]
  - Insomnia [None]
  - Drug effect increased [None]
